FAERS Safety Report 22181859 (Version 1)
Quarter: 2023Q2

REPORT INFORMATION
  Report Type: Spontaneous
  Country: US (occurrence: US)
  Receive Date: 20230406
  Receipt Date: 20230406
  Transmission Date: 20230721
  Serious: Yes (Hospitalization, Other)
  Sender: FDA-Public Use
  Company Number: US-PFIZER INC-202300143589

PATIENT
  Age: 78 Year
  Sex: Male
  Weight: 78.005 kg

DRUGS (1)
  1. FUROSEMIDE [Suspect]
     Active Substance: FUROSEMIDE
     Indication: Cardiac failure congestive
     Dosage: 40 MG
     Dates: start: 202205

REACTIONS (2)
  - Atrial flutter [Not Recovered/Not Resolved]
  - Cardiac ablation [Not Recovered/Not Resolved]

NARRATIVE: CASE EVENT DATE: 20230314
